FAERS Safety Report 22610155 (Version 1)
Quarter: 2023Q2

REPORT INFORMATION
  Report Type: Report from Study
  Country: US (occurrence: US)
  Receive Date: 20230616
  Receipt Date: 20230616
  Transmission Date: 20230722
  Serious: Yes (Other)
  Sender: FDA-Public Use
  Company Number: US-UCBSA-2023029497

PATIENT

DRUGS (1)
  1. LACOSAMIDE [Suspect]
     Active Substance: LACOSAMIDE
     Indication: Product used for unknown indication
     Dosage: UNK
     Route: 042

REACTIONS (9)
  - Bradycardia [Unknown]
  - Electrocardiogram QT prolonged [Unknown]
  - Pancreatitis [Unknown]
  - Somnolence [Unknown]
  - Rash [Unknown]
  - Vomiting [Unknown]
  - Nystagmus [Unknown]
  - Prescribed overdose [Unknown]
  - Off label use [Unknown]
